FAERS Safety Report 5016795-2 (Version None)
Quarter: 2006Q2

REPORT INFORMATION
  Report Type: 
  Country: None (occurrence: None)
  Receive Date: 20060602
  Receipt Date: 20060217
  Transmission Date: 20061013
  Serious: Yes (Life-Threatening, Hospitalization)
  Sender: FDA-Public Use
  Company Number: US-GLAXOSMITHKLINE-A0594155A

PATIENT
  Sex: Male

DRUGS (1)
  1. AUGMENTIN XR [Suspect]
     Dosage: 1TAB TWICE PER DAY
     Route: 048

REACTIONS (2)
  - BLOOD BILIRUBIN INCREASED [None]
  - LIVER DISORDER [None]
